FAERS Safety Report 10886605 (Version 4)
Quarter: 2016Q1

REPORT INFORMATION
  Report Type: Spontaneous
  Country: US (occurrence: US)
  Receive Date: 20150304
  Receipt Date: 20160229
  Transmission Date: 20160525
  Serious: No
  Sender: FDA-Public Use
  Company Number: US-GLAXOSMITHKLINE-US2015GSK028792

PATIENT
  Sex: Female

DRUGS (9)
  1. TOPROL XL [Concomitant]
     Active Substance: METOPROLOL SUCCINATE
  2. PREDNISONE. [Concomitant]
     Active Substance: PREDNISONE
  3. ADVAIR DISKUS [Suspect]
     Active Substance: FLUTICASONE PROPIONATE\SALMETEROL XINAFOATE
     Indication: CHRONIC OBSTRUCTIVE PULMONARY DISEASE
     Dosage: UNK
     Dates: start: 2000
  4. PRILOSEC [Concomitant]
     Active Substance: OMEPRAZOLE MAGNESIUM
  5. SYNTHROID [Concomitant]
     Active Substance: LEVOTHYROXINE SODIUM
  6. ADVAIR DISKUS [Suspect]
     Active Substance: FLUTICASONE PROPIONATE\SALMETEROL XINAFOATE
     Dosage: 100/50 UG
  7. ADVAIR DISKUS [Suspect]
     Active Substance: FLUTICASONE PROPIONATE\SALMETEROL XINAFOATE
     Dosage: 250/50 UG
     Route: 055
  8. SPIRIVA [Concomitant]
     Active Substance: TIOTROPIUM BROMIDE MONOHYDRATE
  9. ASPIRIN + CAFFEINE + SALICYLAMIDE [Concomitant]
     Active Substance: ASPIRIN\CAFFEINE\SALICYLAMIDE

REACTIONS (13)
  - Headache [Unknown]
  - Cough [Unknown]
  - Dizziness [Unknown]
  - Expired product administered [Unknown]
  - Dyspnoea [Unknown]
  - Irritable bowel syndrome [Unknown]
  - Bone pain [Unknown]
  - Adverse drug reaction [Unknown]
  - Aphonia [Unknown]
  - Aortic aneurysm [Unknown]
  - Myalgia [Unknown]
  - Intentional product use issue [Unknown]
  - Syncope [Unknown]
